FAERS Safety Report 5864480-7 (Version None)
Quarter: 2008Q3

REPORT INFORMATION
  Report Type: 
  Country: None (occurrence: None)
  Receive Date: 20080829
  Receipt Date: 20080707
  Transmission Date: 20090109
  Serious: No
  Sender: FDA-Public Use
  Company Number: US-ABBOTT-08P-163-0460907-00

PATIENT
  Sex: Female
  Weight: 117.13 kg

DRUGS (7)
  1. SIMCOR [Suspect]
     Indication: BLOOD CHOLESTEROL
     Dosage: 500/20
     Route: 048
     Dates: start: 20080601, end: 20080626
  2. ACETYLSALICYLIC ACID SRT [Concomitant]
     Indication: BLOOD CHOLESTEROL
     Route: 048
  3. NAPROXEN SODIUM [Concomitant]
     Indication: ARTHRITIS
     Route: 048
  4. MULTI-VITAMIN [Concomitant]
     Indication: DRUG USE FOR UNKNOWN INDICATION
     Route: 048
  5. DIOVAN HCT [Concomitant]
     Indication: HYPERTENSION
     Route: 048
  6. LOVIAZA [Concomitant]
     Indication: BLOOD CHOLESTEROL
     Route: 048
  7. SIMVASTATIN [Concomitant]
     Indication: BLOOD CHOLESTEROL
     Route: 048

REACTIONS (5)
  - BURNING SENSATION [None]
  - HOT FLUSH [None]
  - MIDDLE INSOMNIA [None]
  - PRURITUS [None]
  - SCRATCH [None]
